FAERS Safety Report 6191433-4 (Version None)
Quarter: 2009Q2

REPORT INFORMATION
  Report Type: 
  Country: None (occurrence: None)
  Receive Date: 20090515
  Receipt Date: 20090506
  Transmission Date: 20091009
  Serious: Yes (Hospitalization)
  Sender: FDA-Public Use
  Company Number: US-KINGPHARMUSA00001-K200900547

PATIENT
  Age: 73 Year
  Sex: Female

DRUGS (12)
  1. ALTACE [Suspect]
     Indication: HYPERTENSION
     Dosage: 10 MG, QD
     Route: 048
     Dates: end: 20090320
  2. ALTACE [Suspect]
     Dosage: UNK
     Route: 048
     Dates: start: 20090322, end: 20090324
  3. CO-OLMETEC [Suspect]
     Indication: HYPERTENSION
     Dosage: 1 U, QD
     Route: 048
  4. ALDACTONE [Suspect]
     Indication: HYPERTENSION
     Dosage: 50 MG, QD
     Route: 048
     Dates: end: 20090320
  5. BYETTA [Suspect]
     Indication: DIABETES MELLITUS
     Dosage: ^20 IU*10**3^, QD
     Route: 058
     Dates: start: 20081001, end: 20090320
  6. DAONIL [Concomitant]
     Route: 048
  7. CORDARONE [Concomitant]
  8. ALPRESS LP [Concomitant]
  9. CHRONADALATE [Concomitant]
     Dosage: UNK
  10. FLECAINE [Concomitant]
     Route: 048
  11. PREVISCAN [Concomitant]
     Route: 048
  12. GLUCOPHAGE [Concomitant]
     Route: 048

REACTIONS (6)
  - ASTHENIA [None]
  - BRADYCARDIA [None]
  - DRUG INTERACTION [None]
  - HYPERKALAEMIA [None]
  - MALAISE [None]
  - RENAL FAILURE ACUTE [None]
